FAERS Safety Report 21532019 (Version 1)
Quarter: 2022Q4

REPORT INFORMATION
  Report Type: Report from Study
  Country: US (occurrence: US)
  Receive Date: 20221101
  Receipt Date: 20221101
  Transmission Date: 20230113
  Serious: No
  Sender: FDA-Public Use
  Company Number: US-ABBVIE-4147724

PATIENT
  Sex: Male

DRUGS (1)
  1. HUMIRA [Suspect]
     Active Substance: ADALIMUMAB
     Indication: Rheumatoid arthritis
     Route: 058

REACTIONS (6)
  - Musculoskeletal disorder [Unknown]
  - Gait disturbance [Unknown]
  - Arthralgia [Unknown]
  - Muscular weakness [Unknown]
  - Blood glucose increased [Unknown]
  - Muscle atrophy [Unknown]
